FAERS Safety Report 8258190-9 (Version None)
Quarter: 2012Q2

REPORT INFORMATION
  Report Type: 
  Country: None (occurrence: None)
  Receive Date: 20120404
  Receipt Date: 20120330
  Transmission Date: 20120825
  Serious: Yes (Life-Threatening, Other)
  Sender: FDA-Public Use
  Company Number: PHHY2012BR027908

PATIENT
  Sex: Female
  Weight: 68 kg

DRUGS (1)
  1. EXELON [Suspect]
     Indication: DEMENTIA
     Dosage: 2 CAPSULES IN THE MORNING AND 2 CAPSULES AT NIGHT
     Route: 048

REACTIONS (13)
  - DIARRHOEA [None]
  - HEADACHE [None]
  - INSOMNIA [None]
  - DIZZINESS [None]
  - WEIGHT DECREASED [None]
  - GASTROINTESTINAL INFECTION [None]
  - HYPERTENSION [None]
  - DECREASED APPETITE [None]
  - AGITATION [None]
  - ABDOMINAL PAIN UPPER [None]
  - APPARENT DEATH [None]
  - HYPOGLYCAEMIA [None]
  - VOMITING [None]
